FAERS Safety Report 10538806 (Version 1)
Quarter: 2014Q4

REPORT INFORMATION
  Report Type: Spontaneous
  Country: US (occurrence: US)
  Receive Date: 20141023
  Receipt Date: 20141023
  Transmission Date: 20150529
  Serious: Yes (Other)
  Sender: FDA-Public Use
  Company Number: US-BAYER-2014-152771

PATIENT
  Age: 72 Year
  Sex: Female

DRUGS (1)
  1. CLIMARA [Suspect]
     Active Substance: ESTRADIOL
     Indication: MENOPAUSAL SYMPTOMS
     Dosage: UNK
     Route: 062
     Dates: start: 1995

REACTIONS (4)
  - Gallbladder operation [None]
  - Inappropriate schedule of drug administration [None]
  - Product adhesion issue [None]
  - Cardiac pacemaker insertion [None]

NARRATIVE: CASE EVENT DATE: 2006
